FAERS Safety Report 8977711 (Version 2)
Quarter: 2013Q2

REPORT INFORMATION
  Report Type: Report from Study
  Country: DE (occurrence: DE)
  Receive Date: 20121220
  Receipt Date: 20130604
  Transmission Date: 20140414
  Serious: Yes (Hospitalization)
  Sender: FDA-Public Use
  Company Number: DE-VERTEX PHARMACEUTICALS INC.-2012-026465

PATIENT
  Sex: Male
  Weight: 75 kg

DRUGS (5)
  1. VX-950 (TELAPREVIR) [Suspect]
     Indication: HEPATITIS C
     Dosage: 2250 MG, QD
     Dates: start: 20120811, end: 20121024
  2. PEGINTERFERON ALFA [Suspect]
     Indication: HEPATITIS C
     Dosage: DOSAGE FORM: UNSPECIFIED, 180
     Route: 058
     Dates: start: 20120811
  3. RIBAVIRIN [Suspect]
     Indication: HEPATITIS C
     Dosage: DOSAGE FORM: UNSPECIFIED
     Route: 048
     Dates: start: 20120811
  4. UNACID PD [Concomitant]
     Indication: RASH
     Dosage: DOSAGE FORM: UNSPECIFIED
     Route: 048
     Dates: start: 20121029, end: 20121031
  5. ATARAX [Concomitant]
     Indication: RASH
     Dosage: DOSAGE FORM: UNSPECIFIED
     Route: 048
     Dates: start: 20121028, end: 20121031

REACTIONS (1)
  - Rash [Recovered/Resolved]
